FAERS Safety Report 4517949-1 (Version None)
Quarter: 2004Q4

REPORT INFORMATION
  Report Type: 
  Country: None (occurrence: None)
  Receive Date: 20041130
  Receipt Date: 20041116
  Transmission Date: 20050328
  Serious: Yes (Disabling)
  Sender: FDA-Public Use
  Company Number: B0357625A

PATIENT
  Age: 14 Day
  Sex: Female

DRUGS (5)
  1. RETROVIR [Suspect]
  2. EPIVIR [Suspect]
  3. COMBIVIR [Suspect]
     Dosage: TRANSPLACENTARY
     Route: 064
  4. NEVIRAPINE (NEVIRAPINE) [Suspect]
     Dosage: TRANSPLACENTARY
     Route: 064
  5. RETROVIR [Suspect]
     Dosage: TRANSPLACENTARY
     Route: 064

REACTIONS (10)
  - ANAEMIA [None]
  - AREFLEXIA [None]
  - DEVELOPMENTAL DELAY [None]
  - DRUG EXPOSURE DURING PREGNANCY [None]
  - ELECTROMYOGRAM ABNORMAL [None]
  - FAILURE TO THRIVE [None]
  - HYPOTONIA [None]
  - MICROCEPHALY [None]
  - MITOCHONDRIAL DNA MUTATION [None]
  - STRIDOR [None]
